FAERS Safety Report 5892635-4 (Version None)
Quarter: 2008Q3

REPORT INFORMATION
  Report Type: 
  Country: None (occurrence: None)
  Receive Date: 20080923
  Receipt Date: 20080919
  Transmission Date: 20090109
  Serious: Yes (Hospitalization, Disabling, Other)
  Sender: FDA-Public Use
  Company Number: FR-RB-003556-08

PATIENT
  Age: 30 Year
  Sex: Male

DRUGS (6)
  1. SUBUTEX [Suspect]
     Indication: DRUG DEPENDENCE
     Dosage: DOSING INFORMATION UNKNOWN.
     Route: 013
     Dates: start: 20080301
  2. SUBUTEX [Suspect]
     Indication: SUBSTANCE ABUSE
     Route: 060
     Dates: start: 20080301
  3. ZYPREXA [Concomitant]
     Indication: DRUG USE FOR UNKNOWN INDICATION
     Route: 065
  4. OXAZEPAM [Concomitant]
     Indication: DRUG USE FOR UNKNOWN INDICATION
     Route: 065
  5. CIPROFLOXACIN HYDROCHLORIDE [Concomitant]
     Route: 065
  6. ORBENINE [Concomitant]
     Indication: DRUG USE FOR UNKNOWN INDICATION
     Route: 065

REACTIONS (8)
  - AMPUTATION [None]
  - ARTERIAL THROMBOSIS [None]
  - INCORRECT ROUTE OF DRUG ADMINISTRATION [None]
  - INTENTIONAL DRUG MISUSE [None]
  - NECROSIS [None]
  - PERIPHERAL ISCHAEMIA [None]
  - SUBSTANCE ABUSE [None]
  - SYMPATHECTOMY [None]
